FAERS Safety Report 24415013 (Version 1)
Quarter: 2024Q4

REPORT INFORMATION
  Report Type: Spontaneous
  Country: US (occurrence: US)
  Receive Date: 20241009
  Receipt Date: 20241009
  Transmission Date: 20250115
  Serious: No
  Sender: ABBVIE
  Company Number: US-ABBVIE-5948926

PATIENT
  Age: 69 Year
  Sex: Female
  Weight: 66 kg

DRUGS (2)
  1. FLUOROMETHOLONE [Suspect]
     Active Substance: FLUOROMETHOLONE
     Indication: Postoperative care
     Route: 047
     Dates: start: 202303
  2. FLUOROMETHOLONE [Suspect]
     Active Substance: FLUOROMETHOLONE
     Route: 047
     Dates: start: 20240811

REACTIONS (2)
  - Incorrect dose administered [Not Recovered/Not Resolved]
  - Product packaging issue [Not Recovered/Not Resolved]

NARRATIVE: CASE EVENT DATE: 20240901
